FAERS Safety Report 4928986-7 (Version None)
Quarter: 2006Q1

REPORT INFORMATION
  Report Type: 
  Country: None (occurrence: None)
  Receive Date: 20060301
  Receipt Date: 20060220
  Transmission Date: 20060701
  Serious: Yes (Life-Threatening, Hospitalization)
  Sender: FDA-Public Use
  Company Number: ES-GLAXOSMITHKLINE-B0413799A

PATIENT
  Age: 88 Year
  Sex: Female
  Weight: 55 kg

DRUGS (7)
  1. LANACORDIN PEDIATRICO [Suspect]
     Dosage: 2ML PER DAY
     Route: 048
     Dates: start: 20031205
  2. CLARITHROMYCIN [Suspect]
     Indication: UPPER RESPIRATORY TRACT INFECTION
     Dosage: 500MG TWICE PER DAY
     Route: 048
     Dates: start: 20051207, end: 20051214
  3. SEGURIL [Suspect]
     Dosage: 60MG PER DAY
     Route: 048
     Dates: start: 20031205
  4. ALDACTONE [Concomitant]
     Route: 048
     Dates: start: 20030101
  5. LEVOTHROID [Concomitant]
     Dosage: 25MCG PER DAY
     Route: 048
     Dates: start: 20031205
  6. BESITRAN [Concomitant]
     Dosage: 25MG PER DAY
     Route: 048
     Dates: start: 20031205
  7. ORFIDAL [Concomitant]
     Dosage: 1MG PER DAY
     Route: 048
     Dates: start: 20031205

REACTIONS (2)
  - DRUG INTERACTION [None]
  - HYPONATRAEMIA [None]
